FAERS Safety Report 11413600 (Version 2)
Quarter: 2015Q3

REPORT INFORMATION
  Report Type: Spontaneous
  Country: JP (occurrence: JP)
  Receive Date: 20150824
  Receipt Date: 20150826
  Transmission Date: 20151125
  Serious: Yes (Hospitalization)
  Sender: FDA-Public Use
  Company Number: JP-SA-2015SA125980

PATIENT
  Age: 63 Year
  Sex: Female

DRUGS (7)
  1. CALONAL [Concomitant]
     Active Substance: ACETAMINOPHEN
  2. RENIVACE [Concomitant]
     Active Substance: ENALAPRIL
     Route: 048
     Dates: start: 20150703
  3. AVAPRO [Suspect]
     Active Substance: IRBESARTAN
     Indication: HYPERTENSION
     Route: 048
     Dates: start: 20150811, end: 20150811
  4. CRESTOR [Concomitant]
     Active Substance: ROSUVASTATIN CALCIUM
     Route: 048
     Dates: start: 20110701
  5. LEXOTAN [Concomitant]
     Active Substance: BROMAZEPAM
     Route: 048
  6. TAKEPRON [Concomitant]
     Active Substance: LANSOPRAZOLE
     Route: 048
     Dates: start: 20110701
  7. BAYASPIRIN [Concomitant]
     Active Substance: ASPIRIN
     Route: 048
     Dates: start: 20110701

REACTIONS (1)
  - Anaphylactic shock [Recovering/Resolving]

NARRATIVE: CASE EVENT DATE: 20150811
